FAERS Safety Report 20708241 (Version 1)
Quarter: 2022Q2

REPORT INFORMATION
  Report Type: Spontaneous
  Country: DE (occurrence: DE)
  Receive Date: 20220414
  Receipt Date: 20220414
  Transmission Date: 20220720
  Serious: Yes (Hospitalization, Other)
  Sender: FDA-Public Use
  Company Number: DE-TEVA-2022-DE-2017284

PATIENT
  Age: 90 Year
  Sex: Female
  Weight: 62 kg

DRUGS (9)
  1. CLONIDINE [Suspect]
     Active Substance: CLONIDINE
     Indication: Hypertension
     Route: 048
     Dates: end: 2022
  2. URAPIDIL [Suspect]
     Active Substance: URAPIDIL
     Indication: Hypertension
     Dosage: 2 FEMTOGRAM DAILY; TAKEN SINCE APPR. ONE MONTH, 1 IN THE MORNING AND 1 IN THE EVENING
     Route: 048
     Dates: start: 2022, end: 20220302
  3. LERCANIDIPINE [Concomitant]
     Active Substance: LERCANIDIPINE
     Indication: Hypertension
  4. NEBIVOLOL [Concomitant]
     Active Substance: NEBIVOLOL
     Indication: Hypertension
  5. CANDESARTAN [Concomitant]
     Active Substance: CANDESARTAN
     Indication: Hypertension
  6. TORSEMIDE [Concomitant]
     Active Substance: TORSEMIDE
     Indication: Hypertension
  7. CORTISONE ACETATE [Concomitant]
     Active Substance: CORTISONE ACETATE
     Indication: Rheumatic disorder
  8. FLUTICASONE FUROATE\VILANTEROL TRIFENATATE [Concomitant]
     Active Substance: FLUTICASONE FUROATE\VILANTEROL TRIFENATATE
     Indication: Asthma
  9. Insulin Tresiba [Concomitant]
     Indication: Diabetes mellitus

REACTIONS (7)
  - Arrhythmia [Recovered/Resolved]
  - Nausea [Recovered/Resolved]
  - Vomiting [Recovered/Resolved]
  - Blood glucose increased [Recovered/Resolved]
  - Product availability issue [Unknown]
  - Palpitations [Recovered/Resolved]
  - Dyspnoea [Recovered/Resolved]

NARRATIVE: CASE EVENT DATE: 20220101
